FAERS Safety Report 20376221 (Version 1)
Quarter: 2022Q1

REPORT INFORMATION
  Report Type: Spontaneous
  Country: US (occurrence: None)
  Receive Date: 20220125
  Receipt Date: 20220125
  Transmission Date: 20220423
  Serious: Yes (Life-Threatening)
  Sender: FDA-Public Use
  Company Number: None

PATIENT
  Age: 74 Year
  Sex: Male
  Weight: 75.3 kg

DRUGS (1)
  1. HEPARIN [Suspect]
     Active Substance: HEPARIN SODIUM
     Indication: Pulmonary embolism
     Dosage: OTHER FREQUENCY : 950 UNITS/HOUR;?
     Route: 041
     Dates: start: 20210604, end: 20210605

REACTIONS (2)
  - Haemoglobin decreased [None]
  - Retroperitoneal haemorrhage [None]

NARRATIVE: CASE EVENT DATE: 20210606
